FAERS Safety Report 9239970 (Version 2)
Quarter: 2013Q2

REPORT INFORMATION
  Report Type: Spontaneous
  Country: US (occurrence: US)
  Receive Date: 20130418
  Receipt Date: 20130524
  Transmission Date: 20140414
  Serious: No
  Sender: FDA-Public Use
  Company Number: US-009507513-1304USA006172

PATIENT
  Sex: Female

DRUGS (3)
  1. VICTRELIS [Suspect]
     Indication: HEPATITIS C
     Dosage: 800 MG, TID
     Route: 048
     Dates: start: 20130407
  2. PEGINTRON [Suspect]
     Dosage: 150 MICROGRAM, QW
  3. REBETOL [Suspect]
     Route: 048

REACTIONS (5)
  - Dysphagia [Unknown]
  - Pruritus [Unknown]
  - Dysgeusia [Unknown]
  - Rash [Unknown]
  - Drug administration error [Unknown]
